FAERS Safety Report 9543895 (Version 2)
Quarter: 2013Q4

REPORT INFORMATION
  Report Type: Spontaneous
  Country: JP (occurrence: JP)
  Receive Date: 20130923
  Receipt Date: 20131003
  Transmission Date: 20140711
  Serious: Yes (Other)
  Sender: FDA-Public Use
  Company Number: JP-PFIZER INC-2013267122

PATIENT
  Age: 88 Year
  Sex: Female

DRUGS (10)
  1. LYRICA [Suspect]
     Indication: COMPRESSION FRACTURE
     Dosage: UNK
     Route: 048
     Dates: start: 20120730, end: 2013
  2. BONALON [Suspect]
  3. OPALMON [Suspect]
  4. TAKEPRON [Concomitant]
  5. EDIROL [Concomitant]
  6. MICARDIS [Concomitant]
  7. ATELEC [Concomitant]
  8. CRESTOR [Concomitant]
  9. INOMARL [Concomitant]
  10. NSAID^S [Concomitant]

REACTIONS (2)
  - Off label use [Unknown]
  - Hyperkalaemia [Recovered/Resolved]
